FAERS Safety Report 6064840-8 (Version None)
Quarter: 2009Q1

REPORT INFORMATION
  Report Type: 
  Country: None (occurrence: None)
  Receive Date: 20090203
  Receipt Date: 20090203
  Transmission Date: 20090719
  Serious: No
  Sender: FDA-Public Use
  Company Number: None

PATIENT
  Sex: Female
  Weight: 25.4014 kg

DRUGS (1)
  1. MUCINEX D [Suspect]
     Indication: COUGH
     Dosage: 2 TSP. EVERY 4 HOURS PO
     Route: 048
     Dates: start: 20081217, end: 20081221

REACTIONS (4)
  - BLOOD TEST ABNORMAL [None]
  - MALAISE [None]
  - PRODUCT QUALITY ISSUE [None]
  - URTICARIA [None]
